FAERS Safety Report 10548920 (Version 1)
Quarter: 2014Q4

REPORT INFORMATION
  Report Type: Other
  Country: GB (occurrence: GB)
  Receive Date: 20141028
  Receipt Date: 20141028
  Transmission Date: 20150529
  Serious: Yes (Other)
  Sender: FDA-Public Use
  Company Number: GB-MYLANLABS-2014M1007578

PATIENT

DRUGS (3)
  1. PRAMIPEXOLE [Suspect]
     Active Substance: PRAMIPEXOLE
     Dosage: 1050 MICROGRAM DAILY;
     Route: 048
     Dates: start: 201105
  2. PRAMIPEXOLE [Suspect]
     Active Substance: PRAMIPEXOLE
     Dosage: 1400 ?G, QD
     Route: 048
     Dates: start: 201311
  3. PRAMIPEXOLE [Suspect]
     Active Substance: PRAMIPEXOLE
     Indication: DEPRESSION
     Dosage: 1750 ?G, UNK
     Route: 048
     Dates: start: 201311

REACTIONS (8)
  - Dysgraphia [Not Recovered/Not Resolved]
  - Grip strength decreased [Not Recovered/Not Resolved]
  - Dysaesthesia [Not Recovered/Not Resolved]
  - Off label use [Unknown]
  - Binge eating [Not Recovered/Not Resolved]
  - Dyskinesia [Not Recovered/Not Resolved]
  - Feeling abnormal [Unknown]
  - Poor quality sleep [Not Recovered/Not Resolved]
